FAERS Safety Report 25772559 (Version 1)
Quarter: 2025Q3

REPORT INFORMATION
  Report Type: Spontaneous
  Country: JP (occurrence: JP)
  Receive Date: 20250908
  Receipt Date: 20250908
  Transmission Date: 20251020
  Serious: Yes (Other)
  Sender: ACCORD
  Company Number: JP-MLMSERVICE-20250820-PI619205-00101-1

PATIENT
  Age: 10 Year
  Sex: Male

DRUGS (4)
  1. CISPLATIN [Suspect]
     Active Substance: CISPLATIN
     Indication: Hepatoblastoma
  2. DOXORUBICIN [Concomitant]
     Active Substance: DOXORUBICIN
     Indication: Hepatoblastoma
  3. SORAFENIB [Concomitant]
     Active Substance: SORAFENIB
     Indication: Hepatoblastoma
  4. PIRARUBICIN [Concomitant]
     Active Substance: PIRARUBICIN
     Indication: Hepatoblastoma

REACTIONS (3)
  - Macule [Recovered/Resolved]
  - Cyanosis [Recovered/Resolved]
  - Urticaria [Recovered/Resolved]
